FAERS Safety Report 9862128 (Version 1)
Quarter: 2014Q1

REPORT INFORMATION
  Report Type: Spontaneous
  Country: US (occurrence: None)
  Receive Date: 20140131
  Receipt Date: 20140131
  Transmission Date: 20141002
  Serious: Yes (Hospitalization)
  Sender: FDA-Public Use
  Company Number: None

PATIENT
  Age: 74 Year
  Sex: Male
  Weight: 83.5 kg

DRUGS (2)
  1. ERYTHROMYCIN [Suspect]
     Indication: WOUND
     Route: 048
     Dates: start: 20131104, end: 20131107
  2. CEPHALEXIN [Suspect]
     Route: 048
     Dates: start: 20131029, end: 20131104

REACTIONS (3)
  - Rash [None]
  - Rash macular [None]
  - Rash erythematous [None]
